FAERS Safety Report 16449710 (Version 1)
Quarter: 2019Q3

REPORT INFORMATION
  Report Type: Spontaneous
  Country: US (occurrence: US)
  Receive Date: 20190618
  Receipt Date: 20190618
  Transmission Date: 20191004
  Serious: Yes (Life-Threatening, Disabling)
  Sender: FDA-Public Use
  Company Number: None

PATIENT
  Age: 72 Year
  Sex: Male
  Weight: 83.01 kg

DRUGS (1)
  1. GLATIRAMER ACETATE INJECTION [Suspect]
     Active Substance: GLATIRAMER ACETATE
     Indication: MULTIPLE SCLEROSIS
     Dates: start: 20190606

REACTIONS (5)
  - Treatment failure [None]
  - Product substitution issue [None]
  - Injection site pain [None]
  - Injection site bruising [None]
  - Complication of device removal [None]

NARRATIVE: CASE EVENT DATE: 20190615
